FAERS Safety Report 13232781 (Version 9)
Quarter: 2017Q3

REPORT INFORMATION
  Report Type: Spontaneous
  Country: KR (occurrence: KR)
  Receive Date: 20170214
  Receipt Date: 20170927
  Transmission Date: 20171127
  Serious: Yes (Hospitalization, Other)
  Sender: FDA-Public Use
  Company Number: KR-009507513-1702KOR005597

PATIENT
  Age: 63 Year
  Sex: Male
  Weight: 73.7 kg

DRUGS (23)
  1. HERBEN RETARD [Concomitant]
     Indication: MYOCARDIAL ISCHAEMIA
     Dosage: 90 MG, BID
     Route: 048
     Dates: start: 20160906, end: 20161023
  2. ASPIRIN PROTECT [Concomitant]
     Active Substance: ASPIRIN
     Indication: MYOCARDIAL ISCHAEMIA
     Dosage: 300 MG, QD
     Route: 048
     Dates: start: 20160907, end: 20161116
  3. CURAN [Concomitant]
     Active Substance: RANITIDINE HYDROCHLORIDE
     Dosage: 50 MG, ONCE; STRENGTH: 50MG/2ML
     Route: 042
     Dates: start: 20161017, end: 20161017
  4. APETROL ES [Concomitant]
     Indication: PROPHYLAXIS
     Dosage: 5.2 ML, QD
     Route: 048
     Dates: start: 20160922, end: 20161010
  5. EMEND (FOSAPREPITANT DIMEGLUMINE) [Suspect]
     Active Substance: FOSAPREPITANT DIMEGLUMINE
     Dosage: 150 MG, ONCE
     Route: 042
     Dates: start: 20161017, end: 20161017
  6. DEXAMETHASONE. [Concomitant]
     Active Substance: DEXAMETHASONE
     Indication: PROPHYLAXIS OF NAUSEA AND VOMITING
     Dosage: 4 MG, BID
     Route: 048
     Dates: start: 20160920, end: 20160922
  7. DEXAMETHASONE. [Concomitant]
     Active Substance: DEXAMETHASONE
     Dosage: 4 MG, BID
     Route: 048
     Dates: start: 20161018, end: 20161020
  8. PLAVIX [Concomitant]
     Active Substance: CLOPIDOGREL BISULFATE
     Indication: MYOCARDIAL ISCHAEMIA
     Dosage: 75 MG, QD
     Route: 048
     Dates: start: 20160907, end: 20161116
  9. CURAN [Concomitant]
     Active Substance: RANITIDINE HYDROCHLORIDE
     Indication: PROPHYLAXIS
     Dosage: 150 MG, BID
     Route: 048
     Dates: start: 20160920, end: 20160922
  10. CURAN [Concomitant]
     Active Substance: RANITIDINE HYDROCHLORIDE
     Dosage: 150 MG, BID
     Route: 048
     Dates: start: 20161018, end: 20161020
  11. CISPLAN [Concomitant]
     Active Substance: CISPLATIN
     Indication: SQUAMOUS CELL CARCINOMA
     Dosage: 187 MG, ONCE, CYCLE 1; STRENGTH: 50MG/100ML
     Route: 042
     Dates: start: 20160919, end: 20160919
  12. ALOXI [Concomitant]
     Active Substance: PALONOSETRON HYDROCHLORIDE
     Indication: PROPHYLAXIS OF NAUSEA AND VOMITING
     Dosage: 5 ML, ONCE
     Route: 042
     Dates: start: 20160919, end: 20160919
  13. VASTINAN MR [Concomitant]
     Indication: MYOCARDIAL ISCHAEMIA
     Dosage: 35 MG, BID
     Route: 048
     Dates: start: 20160808, end: 20161023
  14. DEXAMETHASONE SODIUM PHOSPHATE. [Concomitant]
     Active Substance: DEXAMETHASONE SODIUM PHOSPHATE
     Indication: PROPHYLAXIS OF NAUSEA AND VOMITING
     Dosage: 20 MG, ONCE; STRENGTH: 5MG/ML
     Route: 042
     Dates: start: 20160919, end: 20160919
  15. DEXAMETHASONE SODIUM PHOSPHATE. [Concomitant]
     Active Substance: DEXAMETHASONE SODIUM PHOSPHATE
     Dosage: 12 MG, ONCE; STRENGTH: 5MG/ML
     Route: 042
     Dates: start: 20161017, end: 20161017
  16. ISOKET RETARD [Concomitant]
     Indication: MYOCARDIAL ISCHAEMIA
     Dosage: 40 MG, BID
     Route: 048
     Dates: start: 20160901, end: 20161221
  17. CENTRUM (MINERALS (UNSPECIFIED) (+) VITAMINS (UNSPECIFIED)) [Concomitant]
     Indication: VITAMIN SUPPLEMENTATION
     Dosage: 1 TABLET, QD
     Route: 048
     Dates: start: 20160919, end: 20161124
  18. EMEND (FOSAPREPITANT DIMEGLUMINE) [Suspect]
     Active Substance: FOSAPREPITANT DIMEGLUMINE
     Indication: PROPHYLAXIS OF NAUSEA AND VOMITING
     Dosage: 150 MG, ONCE
     Route: 042
     Dates: start: 20160919, end: 20160919
  19. CURAN [Concomitant]
     Active Substance: RANITIDINE HYDROCHLORIDE
     Indication: PROPHYLAXIS
     Dosage: 50 MG, ONCE; STRENGTH: 50MG/2ML
     Route: 042
     Dates: start: 20160919, end: 20160919
  20. CISPLAN [Concomitant]
     Active Substance: CISPLATIN
     Dosage: 180 MG, ONCE, CYCLE 2; STRENGTH: 50MG/100ML
     Route: 042
     Dates: start: 20161017, end: 20161017
  21. CHLORPHENIRAMINE MALEATE. [Concomitant]
     Active Substance: CHLORPHENIRAMINE MALEATE
     Indication: ALLERGY PROPHYLAXIS
     Dosage: 4 MG, ONCE
     Route: 042
     Dates: start: 20160919, end: 20160919
  22. LIPITOR [Concomitant]
     Active Substance: ATORVASTATIN CALCIUM
     Indication: MYOCARDIAL ISCHAEMIA
     Dosage: 40 MG, QD
     Route: 048
     Dates: start: 20160901, end: 20161116
  23. SIGMART [Concomitant]
     Active Substance: NICORANDIL
     Indication: MYOCARDIAL ISCHAEMIA
     Dosage: 5 MG, BID
     Route: 048
     Dates: start: 20160901, end: 20161116

REACTIONS (8)
  - Post procedural oedema [Recovered/Resolved]
  - Staphylococcal infection [Recovered/Resolved]
  - Pyrexia [Recovered/Resolved]
  - Pharyngeal inflammation [Recovered/Resolved]
  - Inflammation [Recovered/Resolved]
  - Pharyngeal inflammation [Recovered/Resolved]
  - Nausea [Recovered/Resolved]
  - Nasal discomfort [Recovered/Resolved]

NARRATIVE: CASE EVENT DATE: 20160925
